FAERS Safety Report 9264063 (Version 5)
Quarter: 2015Q2

REPORT INFORMATION
  Report Type: Spontaneous
  Country: US (occurrence: US)
  Receive Date: 20130430
  Receipt Date: 20150506
  Transmission Date: 20150821
  Serious: No
  Sender: FDA-Public Use
  Company Number: US-009507513-1304USA016967

PATIENT
  Sex: Male
  Weight: 94.33 kg

DRUGS (1)
  1. PROPECIA [Suspect]
     Active Substance: FINASTERIDE
     Indication: ALOPECIA
     Dosage: 1 MG, UNK
     Route: 048
     Dates: start: 19980805, end: 19981110

REACTIONS (9)
  - Blood pressure increased [Unknown]
  - Headache [Unknown]
  - Wisdom teeth removal [Unknown]
  - Bradycardia [Unknown]
  - Muscle strain [Unknown]
  - Fatigue [Unknown]
  - Poor quality sleep [Unknown]
  - Erectile dysfunction [Not Recovered/Not Resolved]
  - Sexual dysfunction [Not Recovered/Not Resolved]

NARRATIVE: CASE EVENT DATE: 1999
